FAERS Safety Report 24755202 (Version 1)
Quarter: 2024Q4

REPORT INFORMATION
  Report Type: Spontaneous
  Country: US (occurrence: US)
  Receive Date: 20241219
  Receipt Date: 20241219
  Transmission Date: 20250115
  Serious: Yes (Other)
  Sender: AMERICAN REGENT
  Company Number: US-AMERICAN REGENT INC-2024004737

PATIENT
  Age: 29 Year
  Sex: Female

DRUGS (1)
  1. METHYLDOPATE HYDROCHLORIDE [Suspect]
     Active Substance: METHYLDOPATE HYDROCHLORIDE
     Indication: Product used for unknown indication
     Dosage: UNK
     Route: 065

REACTIONS (3)
  - Stillbirth [Unknown]
  - Maternal exposure during pregnancy [Unknown]
  - Drug-induced liver injury [Recovered/Resolved]
